FAERS Safety Report 4412076-6 (Version None)
Quarter: 2004Q3

REPORT INFORMATION
  Report Type: 
  Country: None (occurrence: None)
  Receive Date: 20040730
  Receipt Date: 20030617
  Transmission Date: 20050211
  Serious: Yes (Hospitalization)
  Sender: FDA-Public Use
  Company Number: US-GLAXOSMITHKLINE-A0413825A

PATIENT
  Age: 77 Year
  Sex: Female
  Weight: 95.5 kg

DRUGS (19)
  1. AVANDIA [Suspect]
     Dosage: 4MG PER DAY
     Route: 048
     Dates: start: 20010820, end: 20020501
  2. ATENOLOL [Concomitant]
     Dosage: 25MG TWICE PER DAY
  3. HYDROCHLOROTHIAZIDE [Concomitant]
  4. PLENDIL [Concomitant]
     Dosage: 10MG PER DAY
  5. KCL TAB [Concomitant]
     Dosage: 10MEQ TWICE PER DAY
  6. AMARYL [Concomitant]
     Dosage: 2MG CUMULATIVE DOSE
  7. DEMADEX [Concomitant]
  8. ZOLOFT [Concomitant]
  9. ALDACTONE [Concomitant]
  10. THEO [Concomitant]
  11. DIOVAN [Concomitant]
  12. PLAVIX [Concomitant]
  13. VIOXX [Concomitant]
  14. SEREVENT [Concomitant]
  15. FLOVENT [Concomitant]
  16. FLONASE [Concomitant]
  17. NITROGLYCERIN [Concomitant]
  18. CALCIUM [Concomitant]
  19. VITAMIN D [Concomitant]

REACTIONS (8)
  - CARDIAC FAILURE CONGESTIVE [None]
  - CARDIAC MURMUR [None]
  - FLUID OVERLOAD [None]
  - FLUID RETENTION [None]
  - HEART INJURY [None]
  - HEPATIC FAILURE [None]
  - HEPATOCELLULAR DAMAGE [None]
  - SINUS BRADYCARDIA [None]
